FAERS Safety Report 7311029-8 (Version None)
Quarter: 2011Q1

REPORT INFORMATION
  Report Type: 
  Country: None (occurrence: None)
  Receive Date: 20110224
  Receipt Date: 20110215
  Transmission Date: 20110831
  Serious: Yes (Death)
  Sender: FDA-Public Use
  Company Number: BE-CELGENEUS-013-21880-11021809

PATIENT
  Age: 66 Year
  Sex: Male

DRUGS (3)
  1. HYDROXYUREA [Concomitant]
     Indication: SPLENOMEGALY
     Route: 065
  2. REVLIMID [Suspect]
     Indication: MYELOFIBROSIS
     Route: 048
     Dates: start: 20100601
  3. REVLIMID [Suspect]
     Route: 048
     Dates: end: 20101201

REACTIONS (1)
  - DEATH [None]
